FAERS Safety Report 7077433-0 (Version None)
Quarter: 2010Q4

REPORT INFORMATION
  Report Type: 
  Country: None (occurrence: None)
  Receive Date: 20101021
  Receipt Date: 20101011
  Transmission Date: 20110411
  Serious: Yes (Hospitalization)
  Sender: FDA-Public Use
  Company Number: 019934

PATIENT
  Sex: Female

DRUGS (11)
  1. KEPPRA [Suspect]
     Indication: EPILEPSY
     Dosage: (500 MG BID ORAL), (1000 MG BID ORAL), (100 MG ORAL)
     Route: 048
     Dates: start: 20100922, end: 20100924
  2. KEPPRA [Suspect]
     Indication: EPILEPSY
     Dosage: (500 MG BID ORAL), (1000 MG BID ORAL), (100 MG ORAL)
     Route: 048
     Dates: start: 20100925, end: 20100926
  3. KEPPRA [Suspect]
     Indication: EPILEPSY
     Dosage: (500 MG BID ORAL), (1000 MG BID ORAL), (100 MG ORAL)
     Route: 048
     Dates: start: 20100927, end: 20100930
  4. ASPIRIN [Concomitant]
  5. TRINIPLAS [Concomitant]
  6. NEXIUM [Concomitant]
  7. CORDARONE [Concomitant]
  8. TACHIPIRINA [Concomitant]
  9. NORMIX [Concomitant]
  10. CLEXANE [Concomitant]
  11. TAVOR /00273201/ [Concomitant]

REACTIONS (4)
  - ACUTE PSYCHOSIS [None]
  - CONFUSIONAL STATE [None]
  - DELIRIUM [None]
  - HALLUCINATION [None]
